FAERS Safety Report 23254383 (Version 1)
Quarter: 2023Q4

REPORT INFORMATION
  Report Type: Spontaneous
  Country: US (occurrence: US)
  Receive Date: 20231202
  Receipt Date: 20231202
  Transmission Date: 20240110
  Serious: No
  Sender: FDA-Public Use
  Company Number: US-IBSA PHARMA INC.-2023IBS000375

PATIENT

DRUGS (1)
  1. LEVOTHYROXINE SODIUM [Suspect]
     Active Substance: LEVOTHYROXINE SODIUM
     Indication: Thyroid disorder
     Dosage: UNK
     Route: 048

REACTIONS (11)
  - Memory impairment [Recovering/Resolving]
  - Agitation [Recovering/Resolving]
  - Constipation [Recovering/Resolving]
  - Aggression [Recovering/Resolving]
  - Insomnia [Recovering/Resolving]
  - Thyroxine increased [Recovering/Resolving]
  - Blood thyroid stimulating hormone increased [Recovering/Resolving]
  - Fatigue [Recovering/Resolving]
  - Increased appetite [Recovering/Resolving]
  - Affect lability [Recovering/Resolving]
  - Drug ineffective [Unknown]
